FAERS Safety Report 4748459-4 (Version None)
Quarter: 2005Q3

REPORT INFORMATION
  Report Type: 
  Country: None (occurrence: None)
  Receive Date: 20050818
  Receipt Date: 20050810
  Transmission Date: 20060218
  Serious: Yes (Hospitalization)
  Sender: FDA-Public Use
  Company Number: 232475K05USA

PATIENT
  Age: 45 Year
  Sex: Female

DRUGS (6)
  1. REBIF [Suspect]
     Indication: MULTIPLE SCLEROSIS
     Dosage: 44 MCG, 3 IN1 WEEKS, SUBCUTANEOUS
     Route: 058
     Dates: start: 20050505, end: 20050615
  2. INSULIN (INSULIN/00030501) [Suspect]
  3. STEROID (CORTICOSTEROID NOS) [Suspect]
  4. PROZAC [Concomitant]
  5. RESTORIL [Concomitant]
  6. LORTAB [Concomitant]

REACTIONS (3)
  - BLOOD GLUCOSE DECREASED [None]
  - DEHYDRATION [None]
  - DIARRHOEA [None]
